FAERS Safety Report 8068981-5 (Version None)
Quarter: 2012Q1

REPORT INFORMATION
  Report Type: 
  Country: None (occurrence: None)
  Receive Date: 20120125
  Receipt Date: 20120123
  Transmission Date: 20120608
  Serious: Yes (Other)
  Sender: FDA-Public Use
  Company Number: US-BAYER-2012-007526

PATIENT
  Sex: Female

DRUGS (2)
  1. MIRENA [Suspect]
     Indication: CONTRACEPTION
     Dosage: 20 MCG/24HR, CONT
     Route: 015
     Dates: start: 20110824, end: 20120106
  2. MIRENA [Suspect]
     Indication: POLYCYSTIC OVARIES

REACTIONS (4)
  - BACK PAIN [None]
  - ABDOMINAL PAIN [None]
  - INCONTINENCE [None]
  - OVARIAN CYST [None]
